FAERS Safety Report 5208998-9 (Version None)
Quarter: 2007Q1

REPORT INFORMATION
  Report Type: 
  Country: None (occurrence: None)
  Receive Date: 20070116
  Receipt Date: 20070108
  Transmission Date: 20070707
  Serious: Yes (Life-Threatening, Hospitalization)
  Sender: FDA-Public Use
  Company Number: FR-GLAXOSMITHKLINE-B0454090A

PATIENT
  Age: 67 Year
  Sex: Male

DRUGS (6)
  1. AUGMENTIN '125' [Suspect]
     Dosage: 3G PER DAY
     Route: 048
  2. PREVISCAN [Suspect]
     Route: 048
     Dates: end: 20061019
  3. INIPOMP [Suspect]
     Dosage: 40MG THREE TIMES PER DAY
     Route: 065
  4. GLUCIDION [Concomitant]
     Route: 042
  5. LOVENOX [Concomitant]
     Route: 065
  6. TAREG [Concomitant]
     Dosage: 40MG PER DAY
     Route: 048

REACTIONS (10)
  - ANAEMIA [None]
  - COAGULOPATHY [None]
  - DRUG INTERACTION [None]
  - GASTRIC ULCER [None]
  - HAEMOGLOBIN DECREASED [None]
  - INTERNATIONAL NORMALISED RATIO INCREASED [None]
  - OVERDOSE [None]
  - PROTHROMBIN LEVEL DECREASED [None]
  - SKIN NECROSIS [None]
  - UPPER GASTROINTESTINAL HAEMORRHAGE [None]
